FAERS Safety Report 9206183 (Version 1)
Quarter: 2013Q2

REPORT INFORMATION
  Report Type: Spontaneous
  Country: US (occurrence: None)
  Receive Date: 20130401
  Receipt Date: 20130401
  Transmission Date: 20140414
  Serious: Yes (Other)
  Sender: FDA-Public Use
  Company Number: CA13-0139

PATIENT
  Age: 77 Year
  Sex: Male

DRUGS (1)
  1. ENOXAPARIN SODIUM [Suspect]
     Dosage: NEEDLE STICK RECEIVED WITH AN UNUSED NEEDLE BY PERSON ADMINISTERING THE PRODUCT TO THE PATIENT.

REACTIONS (5)
  - Accidental exposure to product [None]
  - Puncture site reaction [None]
  - Erythema [None]
  - Local swelling [None]
  - Needle issue [None]
